FAERS Safety Report 7607533-5 (Version None)
Quarter: 2011Q3

REPORT INFORMATION
  Report Type: 
  Country: None (occurrence: None)
  Receive Date: 20110713
  Receipt Date: 20110712
  Transmission Date: 20111222
  Serious: Yes (Other)
  Sender: FDA-Public Use
  Company Number: AU-BAYER-2011-060571

PATIENT
  Age: 74 Year
  Sex: Male

DRUGS (6)
  1. MEROPENEM [Concomitant]
     Indication: DEVICE RELATED INFECTION
     Dosage: UNK
  2. RIFAMPICIN [Suspect]
     Indication: DEVICE RELATED INFECTION
     Dosage: UNK
  3. IMMUNOSUPPRESSIVE AGENTS [Concomitant]
     Indication: MYASTHENIA GRAVIS
  4. CIPROFLOXACIN HYDROCHLORIDE [Suspect]
     Indication: DEVICE RELATED INFECTION
     Dosage: UNK
  5. FUSIDIC ACID [Suspect]
     Indication: DEVICE RELATED INFECTION
     Dosage: UNK
  6. VANCOMYCIN [Concomitant]
     Indication: DEVICE RELATED INFECTION
     Dosage: UNK

REACTIONS (1)
  - STAPHYLOCOCCAL INFECTION [None]
